FAERS Safety Report 6591161-7 (Version None)
Quarter: 2010Q1

REPORT INFORMATION
  Report Type: 
  Country: None (occurrence: None)
  Receive Date: 20100219
  Receipt Date: 20100209
  Transmission Date: 20100710
  Serious: Yes (Hospitalization, Other)
  Sender: FDA-Public Use
  Company Number: US-ELI_LILLY_AND_COMPANY-US200912003510

PATIENT
  Sex: Female

DRUGS (5)
  1. ALIMTA [Suspect]
     Indication: CHRONIC LYMPHOCYTIC LEUKAEMIA
     Dosage: UNK, UNK
     Dates: start: 20091203
  2. CARBOPLATIN                             /SCH/ [Concomitant]
     Indication: CHRONIC LYMPHOCYTIC LEUKAEMIA
  3. FOLIC ACID [Concomitant]
     Indication: SUPPLEMENTATION THERAPY
  4. VITAMIN B-12 [Concomitant]
     Indication: SUPPLEMENTATION THERAPY
  5. DEXAMETHASONE [Concomitant]
     Dosage: 2 D/F, DAY BEFORE, DAY OF, AND DAY FOLLOWING TREATMENT

REACTIONS (8)
  - CHEST PAIN [None]
  - COLD SWEAT [None]
  - COLITIS ISCHAEMIC [None]
  - DIARRHOEA [None]
  - FEELING COLD [None]
  - NERVOUSNESS [None]
  - OFF LABEL USE [None]
  - VOMITING [None]
